FAERS Safety Report 8794721 (Version 2)
Quarter: 2013Q4

REPORT INFORMATION
  Report Type: Spontaneous
  Country: US (occurrence: US)
  Receive Date: 20120917
  Receipt Date: 20131031
  Transmission Date: 20140711
  Serious: Yes (Life-Threatening, Hospitalization, Other)
  Sender: FDA-Public Use
  Company Number: US-MERCK-1209USA006067

PATIENT
  Age: 29 Year
  Sex: Female

DRUGS (1)
  1. SAPHRIS [Suspect]
     Route: 048

REACTIONS (5)
  - Laceration [Unknown]
  - Dyskinesia [Unknown]
  - Depression [Unknown]
  - Condition aggravated [Unknown]
  - Suicide attempt [Unknown]
